FAERS Safety Report 15538928 (Version 1)
Quarter: 2018Q4

REPORT INFORMATION
  Report Type: Spontaneous
  Country: GB (occurrence: GB)
  Receive Date: 20181022
  Receipt Date: 20181022
  Transmission Date: 20190205
  Serious: Yes (Other)
  Sender: FDA-Public Use
  Company Number: GB-PFIZER INC-2018422880

PATIENT
  Age: 32 Year
  Sex: Female
  Weight: 138 kg

DRUGS (9)
  1. PREGABALIN. [Suspect]
     Active Substance: PREGABALIN
     Indication: BACK PAIN
     Dosage: 3 DF, 1X/DAY
     Dates: start: 20180925
  2. PREGABALIN. [Suspect]
     Active Substance: PREGABALIN
     Dosage: 75 MG, UNK
     Dates: start: 20180926
  3. CIPROFLOXACIN. [Concomitant]
     Active Substance: CIPROFLOXACIN
     Dosage: 2 DF, 1X/DAY
     Dates: start: 20180706, end: 20180711
  4. SALBUTAMOL [Concomitant]
     Active Substance: ALBUTEROL
     Dosage: 2 DF, AS NEEDED
     Route: 055
     Dates: start: 20150922
  5. DIPROBASE [PARAFFIN, LIQUID;WHITE SOFT PARAFFIN] [Concomitant]
     Dosage: UNK, AS NEEDED, (APPLY)
     Dates: start: 20170301
  6. NAPROXEN. [Concomitant]
     Active Substance: NAPROXEN
     Dosage: 1 DF, AS NEEDED, (TAKE ONE TWICE DAILY AFTER FOOD WHEN REQUIRED)
     Dates: start: 20180925
  7. MORPHINE SULFATE. [Concomitant]
     Active Substance: MORPHINE SULFATE
     Dosage: UNK UNK, AS NEEDED (2.5 ML-5 ML 4-6 HOURLY FOR PAIN M ...)
     Dates: start: 20180911
  8. MOMETASONE [Concomitant]
     Active Substance: MOMETASONE
     Dosage: 2 DF, 1X/DAY (SPRAYS)
     Dates: start: 20161024
  9. DESOGESTREL [Concomitant]
     Active Substance: DESOGESTREL
     Dosage: 1 DF, 1X/DAY
     Dates: start: 20170720

REACTIONS (1)
  - Rash pruritic [Recovered/Resolved]

NARRATIVE: CASE EVENT DATE: 20180926
